FAERS Safety Report 5553140-8 (Version None)
Quarter: 2007Q4

REPORT INFORMATION
  Report Type: 
  Country: None (occurrence: None)
  Receive Date: 20071211
  Receipt Date: 20071202
  Transmission Date: 20080405
  Serious: Yes (Other)
  Sender: FDA-Public Use
  Company Number: CHPA2007US13094

PATIENT
  Age: 66 Year
  Sex: Male

DRUGS (2)
  1. THERAFLU DAYTIME COLD + COUGH (NCH)(DEXTROMETHORPHAN HYDROBROMIDE, PHE [Suspect]
     Indication: NASOPHARYNGITIS
     Dosage: 1 DF, ONCE SINGLE, ORAL
     Route: 048
     Dates: start: 20071201, end: 20071201
  2. THERAFLU NIGHT TIME COLD + COUGH (NCH)(DIPHENHYDRAMINE, PHENYLEPHRINE) [Suspect]
     Indication: NASOPHARYNGITIS
     Dosage: 1 DF, SINGLE, ORAL
     Route: 048
     Dates: start: 20071201, end: 20071201

REACTIONS (1)
  - LIP SWELLING [None]
